FAERS Safety Report 23044341 (Version 5)
Quarter: 2023Q4

REPORT INFORMATION
  Report Type: Spontaneous
  Country: CA (occurrence: CA)
  Receive Date: 20231009
  Receipt Date: 20231202
  Transmission Date: 20240110
  Serious: Yes (Other)
  Sender: FDA-Public Use
  Company Number: CA-CELLTRION INC.-2023CA019266

PATIENT

DRUGS (6)
  1. INFLECTRA [Suspect]
     Active Substance: INFLIXIMAB-DYYB
     Indication: Colitis ulcerative
     Dosage: 400 MG, AT 0 (HOSPITAL START), 2, 6, THEN EVERY 8 WEEKS (MAINTENANCE) FOR 24 MONTHS
     Route: 042
     Dates: start: 20230927, end: 20230927
  2. INFLECTRA [Suspect]
     Active Substance: INFLIXIMAB-DYYB
     Dosage: 10 MG/KG, (1DF) W2 ONLY, RETURN TO 400MG FOR W6 AND EVERY 8 WEEKS
     Route: 042
     Dates: start: 20231011
  3. INFLECTRA [Suspect]
     Active Substance: INFLIXIMAB-DYYB
     Dosage: 10 MG/KG, (1DF) W2 ONLY, RETURN TO 400MG FOR W6 AND EVERY 8 WEEKS
     Route: 042
     Dates: start: 20231011
  4. INFLECTRA [Suspect]
     Active Substance: INFLIXIMAB-DYYB
     Dosage: 10 MG/KG, (1DF) W2 ONLY, RETURN TO 400MG FOR W6 AND EVERY 8 WEEKS
     Route: 042
     Dates: start: 20231011
  5. INFLECTRA [Suspect]
     Active Substance: INFLIXIMAB-DYYB
     Dosage: 10 MG/KG, (1DF) W2 ONLY, RETURN TO 400MG FOR W6 AND EVERY 8 WEEKS
     Route: 042
     Dates: start: 20231011
  6. INFLECTRA [Suspect]
     Active Substance: INFLIXIMAB-DYYB
     Dosage: 400 MG (WEEK 6 OF INDUCTION)
     Route: 042
     Dates: start: 20231110

REACTIONS (7)
  - Condition aggravated [Not Recovered/Not Resolved]
  - Haematochezia [Unknown]
  - Blood albumin decreased [Not Recovered/Not Resolved]
  - Off label use [Unknown]
  - Intentional product use issue [Unknown]
  - Off label use [Unknown]
  - Inappropriate schedule of product administration [Unknown]

NARRATIVE: CASE EVENT DATE: 20230101
